FAERS Safety Report 6002677-6 (Version None)
Quarter: 2008Q4

REPORT INFORMATION
  Report Type: 
  Country: None (occurrence: None)
  Receive Date: 20081212
  Receipt Date: 20081126
  Transmission Date: 20090506
  Serious: No
  Sender: FDA-Public Use
  Company Number: 8039931

PATIENT
  Age: 42 Year
  Sex: Female

DRUGS (17)
  1. KEPPRA [Suspect]
     Indication: CONVULSION
     Dosage: PO
     Route: 048
     Dates: end: 20081124
  2. KEPPRA [Suspect]
     Indication: CONVULSION
     Dosage: 1000 MG 3/D; PO
     Route: 048
     Dates: start: 20081125
  3. LAMICTAL [Concomitant]
  4. WARFARIN SODIUM [Concomitant]
  5. HYDROXYCHLOROQUINE SULFATE [Concomitant]
  6. HYDROCODONE BITARTRATE + ACETAMINOPHEN [Concomitant]
  7. LORAZEPAM [Concomitant]
  8. CITALOPRAM [Concomitant]
  9. CELLCEPT [Concomitant]
  10. LORATADINE [Concomitant]
  11. PROTONIX [Concomitant]
  12. FOSAMAX [Concomitant]
  13. MAGNESIUM OXIDE [Concomitant]
  14. POTASSIUM CHLORIDE [Concomitant]
  15. MULTI-VITAMIN [Concomitant]
  16. OSCAL D [Concomitant]
  17. BIOTIN [Concomitant]

REACTIONS (1)
  - CONVULSION [None]
